FAERS Safety Report 8603539-8 (Version None)
Quarter: 2012Q3

REPORT INFORMATION
  Report Type: 
  Country: None (occurrence: None)
  Receive Date: 20120817
  Receipt Date: 20120813
  Transmission Date: 20120928
  Serious: Yes (Other)
  Sender: FDA-Public Use
  Company Number: US-PFIZER INC-2012026742

PATIENT
  Age: 12 Year
  Sex: Male
  Weight: 20.408 kg

DRUGS (26)
  1. GENOTROPIN [Suspect]
     Indication: OSTEOPOROSIS
  2. FLORASTOR KIDS [Concomitant]
     Indication: PROBIOTIC THERAPY
     Dosage: UNK, DAILY
  3. TRILEPTAL [Concomitant]
     Indication: CONVULSION
     Dosage: 300 MG/5 ML, DAILY
  4. CHLORHEXIDINE [Concomitant]
     Dosage: UNK
  5. GENOTROPIN [Suspect]
     Indication: GROWTH HORMONE DEFICIENCY
     Dosage: 1 MG, 1X/DAY
     Dates: start: 20111119, end: 20120101
  6. SYNTHROID [Concomitant]
     Indication: HYPOTHYROIDISM
     Dosage: 50 UG, DAILY
     Route: 048
     Dates: start: 20110323
  7. VASOTEC [Concomitant]
     Dosage: 2.5 MG, 2X/DAY
  8. ATROVENT [Concomitant]
     Indication: ASTHMA
     Dosage: 500/2.5 UG/ML, 3X/DAY
  9. SYMBICORT [Concomitant]
     Indication: ASTHMA
     Dosage: 80/4.5 UG, 2X/DAY
  10. PHOS-NAK [Concomitant]
     Indication: BLOOD PHOSPHORUS DECREASED
     Dosage: UNK, FOUR PACKETS DAILY
  11. BENEPROTEIN [Concomitant]
     Dosage: UNK, TWO TEA SPOON, 4X/DAY
  12. ALBUTEROL [Concomitant]
     Indication: CHRONIC RESPIRATORY FAILURE
  13. GENOTROPIN [Suspect]
     Indication: BLOOD GLUCOSE ABNORMAL
  14. CALTRATE 600+D [Concomitant]
     Indication: VITAMIN SUPPLEMENTATION
  15. REGLAN [Concomitant]
     Indication: GASTRIC DISORDER
     Dosage: UNK, 3X/DAY
  16. SENOKOT [Concomitant]
     Indication: INFREQUENT BOWEL MOVEMENTS
     Dosage: 8.8/5 MG/ML, EVERY OTHER DAY
  17. PREVACID [Concomitant]
     Indication: REFLUX GASTRITIS
     Dosage: 30 MG, DAILY
     Route: 048
  18. CALTRATE 600+D [Concomitant]
     Indication: MINERAL SUPPLEMENTATION
     Dosage: UNK
  19. CENTRUM [Concomitant]
     Dosage: UNK
  20. NITROFURANTOIN [Concomitant]
     Indication: REFLUX NEPHROPATHY
     Dosage: UNK
  21. SODIUM CHLORIDE [Concomitant]
     Indication: BLOOD SODIUM DECREASED
     Dosage: 2.5, MEQ/ML, 2X/DAY
  22. ALBUTEROL [Concomitant]
     Indication: ASTHMA
     Dosage: 2.5/3 MG/ML, 6X/DAY
  23. MIRALAX [Concomitant]
     Indication: INFREQUENT BOWEL MOVEMENTS
     Dosage: 8.5 G, 2X/DAY
  24. NYSTATIN + TRIAMCINOLONE ACETONIDE [Concomitant]
     Indication: LIP ULCERATION
     Dosage: UNK
  25. LANOLIN [Concomitant]
     Dosage: UNK
  26. ATROVENT [Concomitant]
     Indication: CHRONIC RESPIRATORY FAILURE

REACTIONS (6)
  - OFF LABEL USE [None]
  - RESPIRATORY TRACT INFECTION [None]
  - ABDOMINAL DISTENSION [None]
  - CONDITION AGGRAVATED [None]
  - BACK PAIN [None]
  - SCOLIOSIS [None]
